FAERS Safety Report 5015462-9 (Version None)
Quarter: 2006Q2

REPORT INFORMATION
  Report Type: 
  Country: None (occurrence: None)
  Receive Date: 20060601
  Receipt Date: 20060512
  Transmission Date: 20061013
  Serious: Yes (Hospitalization, Other)
  Sender: FDA-Public Use
  Company Number: 2006UW09485

PATIENT
  Age: 67 Year
  Sex: Male
  Weight: 94.1 kg

DRUGS (2)
  1. IRESSA [Suspect]
     Indication: PANCREATIC CARCINOMA
     Route: 048
     Dates: start: 20060412, end: 20060503
  2. DOCETAXEL [Suspect]
     Indication: PANCREATIC CARCINOMA
     Route: 042
     Dates: start: 20060412, end: 20060503

REACTIONS (5)
  - BLOOD CREATININE INCREASED [None]
  - DEHYDRATION [None]
  - HYPOTENSION [None]
  - NAUSEA [None]
  - VOMITING [None]
